FAERS Safety Report 7598397-7 (Version None)
Quarter: 2011Q3

REPORT INFORMATION
  Report Type: 
  Country: None (occurrence: None)
  Receive Date: 20110708
  Receipt Date: 20110629
  Transmission Date: 20111222
  Serious: Yes (Other)
  Sender: FDA-Public Use
  Company Number: CN-ASTRAZENECA-2011SE38975

PATIENT
  Age: 60 Year
  Sex: Male

DRUGS (3)
  1. ATROVENT [Concomitant]
  2. COMBIVENT [Concomitant]
  3. PULMICORT [Suspect]
     Indication: ASTHMA
     Route: 055

REACTIONS (2)
  - DYSGEUSIA [None]
  - WHEEZING [None]
